FAERS Safety Report 15960382 (Version 2)
Quarter: 2020Q2

REPORT INFORMATION
  Report Type: Spontaneous
  Country: US (occurrence: US)
  Receive Date: 20190214
  Receipt Date: 20200402
  Transmission Date: 20200713
  Serious: No
  Sender: FDA-Public Use
  Company Number: US-ROCHE-2220709

PATIENT
  Sex: Female
  Weight: 59.93 kg

DRUGS (15)
  1. SPIRIVA [Concomitant]
     Active Substance: TIOTROPIUM BROMIDE MONOHYDRATE
     Route: 065
  2. PANTOPRAZOLE SODIUM. [Concomitant]
     Active Substance: PANTOPRAZOLE SODIUM
  3. PATANASE [Concomitant]
     Active Substance: OLOPATADINE HYDROCHLORIDE
  4. MONTELUKAST SODIUM. [Concomitant]
     Active Substance: MONTELUKAST SODIUM
  5. MELOXICAM. [Concomitant]
     Active Substance: MELOXICAM
  6. FOSAMAX [Concomitant]
     Active Substance: ALENDRONATE SODIUM
     Route: 065
  7. ERIVEDGE [Suspect]
     Active Substance: VISMODEGIB
     Indication: ASTHMA
     Route: 048
     Dates: start: 20180809
  8. ERIVEDGE [Suspect]
     Active Substance: VISMODEGIB
     Indication: BASAL CELL CARCINOMA
  9. ERIVEDGE [Suspect]
     Active Substance: VISMODEGIB
     Indication: BASAL CELL CARCINOMA
  10. ALBUTEROL;IPRATROPIUM [Concomitant]
     Active Substance: ALBUTEROL\IPRATROPIUM
  11. AMLODIPINE [Concomitant]
     Active Substance: AMLODIPINE BESYLATE
     Route: 065
  12. VENTOLIN HFA [Concomitant]
     Active Substance: ALBUTEROL SULFATE
  13. CALTRATE [Concomitant]
     Active Substance: CALCIUM CARBONATE
     Dosage: 600-800 MG
     Route: 065
  14. ADVAIR HFA [Concomitant]
     Active Substance: FLUTICASONE PROPIONATE\SALMETEROL XINAFOATE
  15. ZETONNA [Concomitant]
     Active Substance: CICLESONIDE

REACTIONS (10)
  - Arthritis [Unknown]
  - Muscle spasms [Not Recovered/Not Resolved]
  - Sciatica [Not Recovered/Not Resolved]
  - Alopecia [Not Recovered/Not Resolved]
  - Off label use [Unknown]
  - Arthritis [Not Recovered/Not Resolved]
  - Arthralgia [Not Recovered/Not Resolved]
  - Intentional product use issue [Unknown]
  - Hyponatraemia [Not Recovered/Not Resolved]
  - Blood uric acid increased [Not Recovered/Not Resolved]
